FAERS Safety Report 4977236-4 (Version None)
Quarter: 2006Q2

REPORT INFORMATION
  Report Type: 
  Country: None (occurrence: None)
  Receive Date: 20060419
  Receipt Date: 20060407
  Transmission Date: 20061013
  Serious: Yes (Hospitalization)
  Sender: FDA-Public Use
  Company Number: US-MERCK-0604USA01930

PATIENT
  Age: 78 Year
  Sex: Female

DRUGS (1)
  1. VIOXX [Suspect]
     Route: 048

REACTIONS (30)
  - ANAEMIA [None]
  - ANAEMIA POSTOPERATIVE [None]
  - ANXIETY [None]
  - CEREBROVASCULAR ACCIDENT [None]
  - DEMENTIA [None]
  - DIVERTICULITIS [None]
  - DUODENAL ULCER [None]
  - FALL [None]
  - GASTROINTESTINAL HAEMORRHAGE [None]
  - HERNIA [None]
  - HIP FRACTURE [None]
  - HYPERGLYCAEMIA [None]
  - HYPERLIPIDAEMIA [None]
  - HYPERTENSION [None]
  - HYPERTENSIVE HEART DISEASE [None]
  - HYPOKALAEMIA [None]
  - HYPONATRAEMIA [None]
  - ILEUS [None]
  - INTERVERTEBRAL DISC DEGENERATION [None]
  - LEUKOCYTOSIS [None]
  - MALNUTRITION [None]
  - OEDEMA PERIPHERAL [None]
  - OSTEONECROSIS [None]
  - OSTEOPOROSIS [None]
  - PEPTIC ULCER [None]
  - RENAL FAILURE [None]
  - SEPSIS [None]
  - SPINAL COLUMN STENOSIS [None]
  - STAPHYLOCOCCAL INFECTION [None]
  - URINARY TRACT INFECTION [None]
